FAERS Safety Report 6541138-2 (Version None)
Quarter: 2010Q1

REPORT INFORMATION
  Report Type: 
  Country: None (occurrence: None)
  Receive Date: 20100118
  Receipt Date: 20100111
  Transmission Date: 20100710
  Serious: Yes (Death, Other)
  Sender: FDA-Public Use
  Company Number: US-BAYER-200936533NA

PATIENT
  Age: 72 Year
  Sex: Female
  Weight: 53 kg

DRUGS (27)
  1. MAGNEVIST [Suspect]
     Indication: NUCLEAR MAGNETIC RESONANCE IMAGING
  2. OMNISCAN [Suspect]
     Indication: NUCLEAR MAGNETIC RESONANCE IMAGING
  3. OPTIMARK [Suspect]
     Indication: NUCLEAR MAGNETIC RESONANCE IMAGING
  4. MULTIHANCE [Suspect]
     Indication: NUCLEAR MAGNETIC RESONANCE IMAGING
  5. PROHANCE [Suspect]
     Indication: NUCLEAR MAGNETIC RESONANCE IMAGING
  6. UNSPECIFIED GADOLINIUM CONTRAST BASED AGENT [Suspect]
     Indication: NUCLEAR MAGNETIC RESONANCE IMAGING
     Dates: start: 20021009, end: 20021009
  7. UNSPECIFIED GADOLINIUM CONTRAST BASED AGENT [Suspect]
     Dates: start: 20021102, end: 20021102
  8. UNSPECIFIED GADOLINIUM CONTRAST BASED AGENT [Suspect]
     Dates: start: 20021220, end: 20021220
  9. UNSPECIFIED GADOLINIUM CONTRAST BASED AGENT [Suspect]
     Dates: start: 20031125, end: 20031125
  10. UNSPECIFIED GADOLINIUM CONTRAST BASED AGENT [Suspect]
     Dates: start: 20060418, end: 20060418
  11. UNSPECIFIED GADOLINIUM CONTRAST BASED AGENT [Suspect]
     Dates: start: 20041019, end: 20041019
  12. UNSPECIFIED GADOLINIUM CONTRAST BASED AGENT [Suspect]
     Dates: start: 20040427, end: 20040427
  13. UNSPECIFIED GADOLINIUM CONTRAST BASED AGENT [Suspect]
     Dates: start: 20030513, end: 20030513
  14. SENSIPAR [Concomitant]
  15. CRESTOR [Concomitant]
  16. ZETIA [Concomitant]
  17. RENAL CAPS [Concomitant]
  18. PLAVIX [Concomitant]
  19. NORVASC [Concomitant]
     Indication: HYPERTENSION
  20. METOPROLOL [Concomitant]
  21. LISINOPRIL [Concomitant]
  22. LEVOXYL [Concomitant]
  23. FOSRENOL [Concomitant]
  24. ASPIRIN [Concomitant]
     Indication: ISCHAEMIC HEART DISEASE PROPHYLAXIS
  25. ACTOS [Concomitant]
     Indication: DIABETES MELLITUS MANAGEMENT
  26. VYTORIN [Concomitant]
     Indication: HYPERTENSION
  27. LABETALOL HCL [Concomitant]
     Indication: HYPERTENSION

REACTIONS (15)
  - ASTHENIA [None]
  - ERYTHEMA [None]
  - LIVEDO RETICULARIS [None]
  - MOBILITY DECREASED [None]
  - NEPHROGENIC SYSTEMIC FIBROSIS [None]
  - PAIN [None]
  - PRURITUS [None]
  - RASH PAPULAR [None]
  - SKIN DISCOLOURATION [None]
  - SKIN DISORDER [None]
  - SKIN EXFOLIATION [None]
  - SKIN HYPERPIGMENTATION [None]
  - SKIN HYPERTROPHY [None]
  - SKIN INDURATION [None]
  - XEROSIS [None]
